FAERS Safety Report 8421769-5 (Version None)
Quarter: 2012Q2

REPORT INFORMATION
  Report Type: 
  Country: None (occurrence: None)
  Receive Date: 20120605
  Receipt Date: 20120605
  Transmission Date: 20120825
  Serious: No
  Sender: FDA-Public Use
  Company Number: None

PATIENT

DRUGS (2)
  1. AZITHROMYCIN [Suspect]
     Indication: POST PROCEDURAL INFECTION
     Dosage: 2 DAY ONE 1 DAY BY MOUTH; 1 DAILY 4 DAYS BY MOUTH
     Route: 048
     Dates: start: 20120425
  2. AZITHROMYCIN [Suspect]
     Indication: POST PROCEDURAL INFECTION
     Dosage: 2 DAY ONE 1 DAY BY MOUTH; 1 DAILY 4 DAYS BY MOUTH
     Route: 048
     Dates: start: 20120424

REACTIONS (1)
  - DIARRHOEA [None]
